FAERS Safety Report 9731580 (Version 1)
Quarter: 2013Q4

REPORT INFORMATION
  Report Type: Spontaneous
  Country: AU (occurrence: AU)
  Receive Date: 20131203
  Receipt Date: 20131203
  Transmission Date: 20140711
  Serious: Yes (Other)
  Sender: FDA-Public Use
  Company Number: PHHY2013AU140448

PATIENT
  Age: 55 Year
  Sex: Male

DRUGS (2)
  1. GALVUMET [Suspect]
     Dosage: 1 DF, BID (1000 MG METF/50 MG VILDA)
  2. EXFORGE [Suspect]
     Dosage: UNK UKN, UNK

REACTIONS (1)
  - Pancreatic carcinoma metastatic [Unknown]
